FAERS Safety Report 13575296 (Version 3)
Quarter: 2017Q2

REPORT INFORMATION
  Report Type: Report from Study
  Country: ES (occurrence: ES)
  Receive Date: 20170524
  Receipt Date: 20170607
  Transmission Date: 20170830
  Serious: Yes (Disabling, Other)
  Sender: FDA-Public Use
  Company Number: PHHY2017ES074531

PATIENT
  Age: 17 Year
  Sex: Female
  Weight: 43 kg

DRUGS (5)
  1. TRAMETINIB [Suspect]
     Active Substance: TRAMETINIB
     Indication: GLIOMA
     Dosage: 0.025 MG/KG, QD
     Route: 048
     Dates: start: 20160505, end: 20170308
  2. VALPROATE [Concomitant]
     Active Substance: VALPROIC ACID
     Indication: PRODUCT USED FOR UNKNOWN INDICATION
     Dosage: 1100 OT, QD (500, 100, 500 MG)
     Route: 065
  3. GABAPENTINE [Concomitant]
     Active Substance: GABAPENTIN
     Indication: PAIN
     Dosage: 300 MG, Q8H
     Route: 065
  4. ZONISAMIDE. [Concomitant]
     Active Substance: ZONISAMIDE
     Indication: EPILEPSY
     Dosage: 400 MG, QD (100 MG, 100 MG, 200 MG)
     Route: 065
  5. LACOSAMIDE. [Concomitant]
     Active Substance: LACOSAMIDE
     Indication: EPILEPSY
     Dosage: 400 MG, QD (100, 100, 200 MG)
     Route: 065

REACTIONS (11)
  - Dry skin [Recovered/Resolved]
  - Alopecia [Recovered/Resolved]
  - Fatigue [Not Recovered/Not Resolved]
  - Trichomegaly [Not Recovered/Not Resolved]
  - Cheilitis [Recovered/Resolved]
  - Eczema [Recovering/Resolving]
  - Constipation [Recovered/Resolved]
  - Stomatitis [Recovered/Resolved]
  - Inflammatory pain [Recovered/Resolved]
  - Gingivitis [Recovered/Resolved]
  - Epistaxis [Recovered/Resolved]

NARRATIVE: CASE EVENT DATE: 20160525
